FAERS Safety Report 9602111 (Version 1)
Quarter: 2013Q4

REPORT INFORMATION
  Report Type: Spontaneous
  Country: AU (occurrence: None)
  Receive Date: 20131002
  Receipt Date: 20131002
  Transmission Date: 20140711
  Serious: Yes (Life-Threatening)
  Sender: FDA-Public Use
  Company Number: FK201304424

PATIENT
  Age: 56 Day
  Sex: 0

DRUGS (1)
  1. PROPRANOLOL HYDROHLORIDE [Suspect]
     Indication: HAEMANGIOMA

REACTIONS (5)
  - Apnoea neonatal [None]
  - Apnoea neonatal [None]
  - Off label use [None]
  - Off label use [None]
  - Premature baby [None]
